FAERS Safety Report 5670733-8 (Version None)
Quarter: 2008Q1

REPORT INFORMATION
  Report Type: 
  Country: None (occurrence: None)
  Receive Date: 20080318
  Receipt Date: 20080307
  Transmission Date: 20080703
  Serious: Yes (Hospitalization, Other)
  Sender: FDA-Public Use
  Company Number: PHBS2008ES03257

PATIENT
  Age: 3 Year
  Sex: Male

DRUGS (3)
  1. ANTITHYMOCYTE IMMUNOGLOBULIN [Concomitant]
     Indication: LIVER TRANSPLANT
  2. STEROIDS NOS [Concomitant]
     Indication: LIVER TRANSPLANT
  3. CYCLOSPORINE [Suspect]
     Indication: LIVER TRANSPLANT

REACTIONS (10)
  - ABSCESS DRAINAGE [None]
  - ANEURYSM [None]
  - AORTIC ANEURYSM [None]
  - COMPLICATIONS OF TRANSPLANTED LIVER [None]
  - HEPATIC ARTERY THROMBOSIS [None]
  - HEPATITIS [None]
  - HEPATITIS C [None]
  - LIVER TRANSPLANT [None]
  - LIVER TRANSPLANT REJECTION [None]
  - TRANSPLANT ABSCESS [None]
